FAERS Safety Report 25084448 (Version 1)
Quarter: 2025Q1

REPORT INFORMATION
  Report Type: Spontaneous
  Country: CN (occurrence: CN)
  Receive Date: 20250317
  Receipt Date: 20250317
  Transmission Date: 20250409
  Serious: Yes (Other)
  Sender: PFIZER
  Company Number: CN-PFIZER INC-PV202500031144

PATIENT
  Age: 61 Year
  Sex: Male
  Weight: 72 kg

DRUGS (2)
  1. MEROPENEM [Suspect]
     Active Substance: MEROPENEM
     Indication: Pneumonia
     Dosage: 0.5 GRAM, BID
     Route: 041
     Dates: start: 20250214, end: 20250214
  2. SODIUM CHLORIDE [Concomitant]
     Active Substance: SODIUM CHLORIDE
     Dates: start: 20250214, end: 20250214

REACTIONS (5)
  - Tachypnoea [Recovering/Resolving]
  - Dyspnoea [Recovering/Resolving]
  - Blood pressure increased [Recovering/Resolving]
  - Heart rate increased [Recovering/Resolving]
  - Oxygen saturation decreased [Recovering/Resolving]

NARRATIVE: CASE EVENT DATE: 20250214
